FAERS Safety Report 18094945 (Version 1)
Quarter: 2020Q3

REPORT INFORMATION
  Report Type: Spontaneous
  Country: LV (occurrence: LV)
  Receive Date: 20200731
  Receipt Date: 20200731
  Transmission Date: 20201103
  Serious: Yes (Other)
  Sender: FDA-Public Use
  Company Number: LV-TEVA-2020-LV-1806354

PATIENT
  Age: 75 Year
  Sex: Female
  Weight: 80 kg

DRUGS (3)
  1. METOPROLOL RATIOPHARM 50 MG TABLETES [Suspect]
     Active Substance: METOPROLOL
     Indication: HYPERTENSION
     Route: 048
     Dates: start: 20200630, end: 20200713
  2. NOLITERAX 10 MG/2.5 MG APVALKOTAS TABLETES [Concomitant]
     Indication: HYPERTENSION
     Route: 048
     Dates: start: 20200630
  3. METOPROLOL RATIOPHARM 50 MG TABLETES [Suspect]
     Active Substance: METOPROLOL
     Indication: CORONARY ARTERY DISEASE

REACTIONS (3)
  - Heart rate increased [Recovered/Resolved]
  - Headache [Recovered/Resolved]
  - Drug ineffective [Recovered/Resolved]

NARRATIVE: CASE EVENT DATE: 20200701
